FAERS Safety Report 12319120 (Version 2)
Quarter: 2016Q2

REPORT INFORMATION
  Report Type: Spontaneous
  Country: US (occurrence: US)
  Receive Date: 20160429
  Receipt Date: 20160513
  Transmission Date: 20160815
  Serious: Yes (Other)
  Sender: FDA-Public Use
  Company Number: US-SMITH AND NEPHEW, INC-2016SMT00345

PATIENT
  Age: 54 Year
  Sex: Male
  Weight: 143.31 kg

DRUGS (9)
  1. REGRANEX [Suspect]
     Active Substance: BECAPLERMIN
     Indication: DIABETIC FOOT
     Dosage: UNK UNK, 1X/DAY
     Route: 061
     Dates: start: 20160106, end: 20160411
  2. ATORVASTATIN [Concomitant]
     Active Substance: ATORVASTATIN
  3. ^CHLOROTHIAZONE^ [Concomitant]
  4. LASIX [Concomitant]
     Active Substance: FUROSEMIDE
  5. INSULIN BYDUREON [Concomitant]
     Dosage: UNK, 1X/WEEK
  6. LISINOPRIL. [Concomitant]
     Active Substance: LISINOPRIL
  7. OSENI [Concomitant]
     Active Substance: ALOGLIPTIN BENZOATE\PIOGLITAZONE HYDROCHLORIDE
  8. TOUJEO [Concomitant]
     Active Substance: INSULIN GLARGINE
     Dosage: 40 IU, 1X/DAY
  9. NIACIN. [Concomitant]
     Active Substance: NIACIN
     Dosage: UNK, 1X/DAY

REACTIONS (3)
  - Drug ineffective [Unknown]
  - Tendon rupture [Unknown]
  - Dermatitis [Unknown]

NARRATIVE: CASE EVENT DATE: 2016
